FAERS Safety Report 6887572-2 (Version None)
Quarter: 2010Q3

REPORT INFORMATION
  Report Type: 
  Country: None (occurrence: None)
  Receive Date: 20100730
  Receipt Date: 20100721
  Transmission Date: 20110219
  Serious: Yes (Hospitalization, Other)
  Sender: FDA-Public Use
  Company Number: CA-WYE-G06451010

PATIENT
  Sex: Male

DRUGS (1)
  1. AMIODARONE HCL [Suspect]
     Dosage: UNKNOWN
     Dates: start: 20010101

REACTIONS (3)
  - CORONARY ARTERY BYPASS [None]
  - PULMONARY FIBROSIS [None]
  - PULMONARY FUNCTION TEST DECREASED [None]
